FAERS Safety Report 10337160 (Version 1)
Quarter: 2014Q3

REPORT INFORMATION
  Report Type: Report from Study
  Country: BR (occurrence: BR)
  Receive Date: 20140723
  Receipt Date: 20140723
  Transmission Date: 20150326
  Serious: Yes (Other)
  Sender: FDA-Public Use
  Company Number: BR-009507513-1407BRA009435

PATIENT

DRUGS (3)
  1. PEGINTERFERON ALFA-2A [Suspect]
     Active Substance: PEGINTERFERON ALFA-2A
     Indication: HEPATITIS C
     Dosage: 180 MICROGRAM, QW
     Route: 058
  2. PEGINTERFERON ALFA-2B [Suspect]
     Active Substance: PEGINTERFERON ALFA-2B
     Indication: HEPATITIS C
     Dosage: 1.5 MICROGRAM PER KILOGRAM, QW
     Route: 058
  3. RIBAVIRIN. [Suspect]
     Active Substance: RIBAVIRIN
     Indication: HEPATITIS C
     Dosage: 1250 MG, QD
     Route: 048

REACTIONS (12)
  - Hepatic cirrhosis [Unknown]
  - Adverse event [Unknown]
  - No therapeutic response [Unknown]
  - Neutropenia [Unknown]
  - Hepatitis C [Unknown]
  - Renal failure acute [Unknown]
  - Ascites [Unknown]
  - Encephalopathy [Unknown]
  - Anaemia [Unknown]
  - Thrombocytopenia [Unknown]
  - Psoriasis [Unknown]
  - Hepatocellular carcinoma [Unknown]
